FAERS Safety Report 25987371 (Version 1)
Quarter: 2025Q4

REPORT INFORMATION
  Report Type: Spontaneous
  Country: EU (occurrence: EU)
  Receive Date: 20251103
  Receipt Date: 20251103
  Transmission Date: 20260118
  Serious: No
  Sender: ALKEM
  Company Number: EU-ALKEM LABORATORIES LIMITED-DE-ALKEM-2025-07488

PATIENT
  Sex: Female

DRUGS (2)
  1. IBUPROFEN [Suspect]
     Active Substance: IBUPROFEN
     Indication: Product used for unknown indication
     Dosage: UNK
     Route: 065
  2. NITROXOLINE [Suspect]
     Active Substance: NITROXOLINE
     Indication: Prophylaxis
     Dosage: UNK
     Route: 048
     Dates: start: 202304

REACTIONS (1)
  - Heavy metal abnormal [Unknown]
